FAERS Safety Report 6986338-2 (Version None)
Quarter: 2010Q3

REPORT INFORMATION
  Report Type: 
  Country: None (occurrence: None)
  Receive Date: 20100915
  Receipt Date: 20090618
  Transmission Date: 20110219
  Serious: No
  Sender: FDA-Public Use
  Company Number: US-WYE-H09858609

PATIENT
  Age: 71 Year
  Sex: Female

DRUGS (9)
  1. PRISTIQ [Suspect]
     Indication: DEPRESSION
     Route: 048
     Dates: start: 20090601, end: 20090601
  2. PRISTIQ [Interacting]
     Indication: FIBROMYALGIA
  3. POTASSIUM [Concomitant]
  4. VICODIN [Concomitant]
  5. BISOPROLOL [Concomitant]
  6. HYDROCHLOROTHIAZIDE [Concomitant]
  7. DIAZEPAM [Concomitant]
  8. NORTRIPTYLINE HCL [Interacting]
     Indication: DEPRESSION
     Dosage: UNKNOWN START DATE UNTIL 15-JUN-2009, 25 MG FREQUENCY UNKNOWN
  9. AMLODIPINE [Concomitant]

REACTIONS (5)
  - CONDITION AGGRAVATED [None]
  - COORDINATION ABNORMAL [None]
  - DRUG INTERACTION [None]
  - HALLUCINATION, VISUAL [None]
  - HEADACHE [None]
